FAERS Safety Report 7828454-9 (Version None)
Quarter: 2011Q4

REPORT INFORMATION
  Report Type: 
  Country: None (occurrence: None)
  Receive Date: 20111020
  Receipt Date: 20111007
  Transmission Date: 20120403
  Serious: Yes (Hospitalization)
  Sender: FDA-Public Use
  Company Number: JP-MERCK-0809USA02131

PATIENT
  Age: 81 Year
  Sex: Male
  Weight: 59 kg

DRUGS (5)
  1. BIASAN [Concomitant]
     Route: 048
  2. EURODIN [Concomitant]
     Indication: INSOMNIA
     Route: 048
  3. HYZAAR [Suspect]
     Indication: HYPERTENSION
     Route: 048
     Dates: start: 20080821, end: 20080908
  4. OLMESARTAN MEDOXOMIL [Concomitant]
     Indication: HYPERTENSION
     Route: 048
     Dates: end: 20080821
  5. ADALAT [Concomitant]
     Indication: HYPERTENSION
     Route: 048
     Dates: end: 20080921

REACTIONS (2)
  - GASTROOESOPHAGEAL REFLUX DISEASE [None]
  - HYPONATRAEMIA [None]
